FAERS Safety Report 20040639 (Version 1)
Quarter: 2021Q4

REPORT INFORMATION
  Report Type: Spontaneous
  Country: US (occurrence: None)
  Receive Date: 20211108
  Receipt Date: 20211108
  Transmission Date: 20220303
  Serious: Yes (Hospitalization)
  Sender: FDA-Public Use
  Company Number: None

PATIENT
  Age: 59 Year
  Sex: Female
  Weight: 49.5 kg

DRUGS (12)
  1. CASIRIVIMAB\IMDEVIMAB [Suspect]
     Active Substance: CASIRIVIMAB\IMDEVIMAB
     Indication: COVID-19
     Dosage: OTHER FREQUENCY : ONCE;?
     Route: 042
     Dates: start: 20211102, end: 20211102
  2. ONDANSETRON [Concomitant]
     Active Substance: ONDANSETRON
     Dates: start: 20211102
  3. BENZONATATE [Concomitant]
     Active Substance: BENZONATATE
     Dates: start: 20211102
  4. EPINEPHRINE [Concomitant]
     Active Substance: EPINEPHRINE
     Dates: start: 20211102
  5. BACLOFEN [Concomitant]
     Active Substance: BACLOFEN
     Dates: start: 20210826
  6. DICLOFENAC [Concomitant]
     Active Substance: DICLOFENAC
     Dates: start: 20210909
  7. Pyridoxine, Vitamin B6 [Concomitant]
     Dates: start: 20210924
  8. ISONIAZID [Concomitant]
     Active Substance: ISONIAZID
     Dates: start: 20210924
  9. ALENDRONATE [Concomitant]
     Active Substance: ALENDRONATE SODIUM
     Dates: start: 20210809
  10. ACETAMINOPHEN [Concomitant]
     Active Substance: ACETAMINOPHEN
     Dates: start: 20211102
  11. DIPHENHYDRAMINE [Concomitant]
     Active Substance: DIPHENHYDRAMINE
     Dates: start: 20211102
  12. PROCHLORPERAZINE [Concomitant]
     Active Substance: PROCHLORPERAZINE
     Dates: start: 20211102, end: 20211106

REACTIONS (4)
  - Feeding disorder [None]
  - Nausea [None]
  - Hypophagia [None]
  - Cough [None]

NARRATIVE: CASE EVENT DATE: 20211106
